FAERS Safety Report 5351480-9 (Version None)
Quarter: 2007Q2

REPORT INFORMATION
  Report Type: 
  Country: None (occurrence: None)
  Receive Date: 20070521
  Receipt Date: 20070403
  Transmission Date: 20071010
  Serious: No
  Sender: FDA-Public Use
  Company Number: WAES 0704USA00798

PATIENT
  Age: 55 Year
  Sex: Female

DRUGS (3)
  1. JANUVIA [Suspect]
     Indication: DIABETES MELLITUS NON-INSULIN-DEPENDENT
     Dosage: 100 MG/PO
     Route: 048
     Dates: start: 20061214, end: 20070108
  2. LIPITOR [Concomitant]
  3. MIDRIN [Concomitant]

REACTIONS (1)
  - HYPOGLYCAEMIA [None]
